FAERS Safety Report 7552350-8 (Version None)
Quarter: 2011Q2

REPORT INFORMATION
  Report Type: 
  Country: None (occurrence: None)
  Receive Date: 20110616
  Receipt Date: 20080609
  Transmission Date: 20111010
  Serious: Yes (Death, Other)
  Sender: FDA-Public Use
  Company Number: PHHY2008US08315

PATIENT
  Sex: Male
  Weight: 76 kg

DRUGS (4)
  1. PLAVIX [Concomitant]
     Dosage: 75 MG, QD
     Route: 048
  2. EXJADE [Suspect]
     Indication: IRON OVERLOAD
     Dosage: 1500 MG, QD
     Route: 048
     Dates: start: 20070717, end: 20080322
  3. AMIODARONE HCL [Concomitant]
     Dosage: 100 MG, QD
  4. LIPITOR [Concomitant]
     Dosage: 10 MG, QD
     Route: 048

REACTIONS (6)
  - NEUTROPENIA [None]
  - MYELODYSPLASTIC SYNDROME [None]
  - SEPSIS [None]
  - THROMBOCYTOPENIA [None]
  - PULMONARY HAEMORRHAGE [None]
  - HAEMOPTYSIS [None]
